FAERS Safety Report 5781804-X (Version None)
Quarter: 2008Q2

REPORT INFORMATION
  Report Type: 
  Country: None (occurrence: None)
  Receive Date: 20080623
  Receipt Date: 20071113
  Transmission Date: 20081010
  Serious: No
  Sender: FDA-Public Use
  Company Number: US-ASTRAZENECA-2007UW26317

PATIENT
  Age: 85 Year
  Sex: Female

DRUGS (1)
  1. RHINOCORT [Suspect]
     Indication: HYPERSENSITIVITY
     Dosage: ONE SPRAY IN EACH NOSTRIL AT NIGHT
     Route: 045
     Dates: start: 20071001

REACTIONS (1)
  - INCREASED UPPER AIRWAY SECRETION [None]
